FAERS Safety Report 10871402 (Version 1)
Quarter: 2015Q1

REPORT INFORMATION
  Report Type: Spontaneous
  Country: GR (occurrence: None)
  Receive Date: 20150223
  Receipt Date: 20150223
  Transmission Date: 20150721
  Serious: Yes (Hospitalization)
  Sender: FDA-Public Use
  Company Number: NSR_01969_2015

PATIENT
  Age: 70 Year
  Sex: Male

DRUGS (2)
  1. BACLOFEN (BACLOFEN) [Suspect]
     Active Substance: BACLOFEN
     Indication: MYALGIA
     Dosage: 40 MG TOTALLY RECEIVED ORAL
     Route: 048
  2. DIALYSIS [Concomitant]
     Active Substance: UNSPECIFIED INGREDIENT

REACTIONS (3)
  - Loss of consciousness [None]
  - Disorientation [None]
  - Toxicity to various agents [None]
